FAERS Safety Report 5610960-9 (Version None)
Quarter: 2008Q1

REPORT INFORMATION
  Report Type: 
  Country: None (occurrence: None)
  Receive Date: 20080111
  Receipt Date: 20070928
  Transmission Date: 20080703
  Serious: Yes (Other)
  Sender: FDA-Public Use
  Company Number: HQWYE194116JUL04

PATIENT
  Age: 72 Year
  Sex: Female
  Weight: 97.61 kg

DRUGS (1)
  1. PREMPRO [Suspect]
     Indication: HORMONE REPLACEMENT THERAPY
     Dosage: 0.625MG/2.5MG, ORAL
     Route: 048
     Dates: start: 19970101, end: 20020601

REACTIONS (1)
  - BREAST CANCER [None]
